FAERS Safety Report 12452154 (Version 2)
Quarter: 2016Q2

REPORT INFORMATION
  Report Type: Spontaneous
  Country: RS (occurrence: RS)
  Receive Date: 20160609
  Receipt Date: 20160624
  Transmission Date: 20160815
  Serious: Yes (Other)
  Sender: FDA-Public Use
  Company Number: RS-TAKEDA-2016TUS009694

PATIENT
  Age: 72 Year
  Sex: Male

DRUGS (8)
  1. BERODUAL [Concomitant]
     Active Substance: FENOTEROL HYDROBROMIDE\IPRATROPIUM BROMIDE
     Indication: CHRONIC OBSTRUCTIVE PULMONARY DISEASE
     Dosage: UNK
     Dates: start: 20140508, end: 20150906
  2. ADENURIC [Suspect]
     Active Substance: FEBUXOSTAT
     Indication: HYPERURICAEMIA
     Dosage: 80 MG, QD
     Route: 065
     Dates: start: 20131030, end: 20150714
  3. MONOPRIL PLUS [Concomitant]
     Indication: HYPERTENSION
     Dosage: UNK
     Dates: start: 2013, end: 20150906
  4. SYMBICORT [Concomitant]
     Active Substance: BUDESONIDE\FORMOTEROL FUMARATE DIHYDRATE
     Indication: CHRONIC OBSTRUCTIVE PULMONARY DISEASE
     Dosage: UNK
     Dates: start: 20140508, end: 20150906
  5. ADENURIC [Suspect]
     Active Substance: FEBUXOSTAT
     Dosage: 80 MG, QOD
     Route: 065
     Dates: start: 20150714, end: 20150906
  6. AMINOFILIN                         /00003701/ [Concomitant]
     Dosage: UNK
     Dates: start: 20140508, end: 20150906
  7. DIPROPHOS                          /00582101/ [Concomitant]
     Dosage: UNK
     Dates: start: 20150717, end: 20150717
  8. MONOPRIL [Concomitant]
     Active Substance: FOSINOPRIL SODIUM
     Indication: HYPERTENSION
     Dosage: UNK
     Dates: start: 2013, end: 20150906

REACTIONS (2)
  - Cerebral haemorrhage [Recovering/Resolving]
  - Off label use [Recovered/Resolved]

NARRATIVE: CASE EVENT DATE: 20150714
